FAERS Safety Report 11225045 (Version 4)
Quarter: 2015Q3

REPORT INFORMATION
  Report Type: Spontaneous
  Country: DK (occurrence: DK)
  Receive Date: 20150629
  Receipt Date: 20150817
  Transmission Date: 20151125
  Serious: Yes (Hospitalization)
  Sender: FDA-Public Use
  Company Number: DK-CELGENE-DNK-2015066004

PATIENT
  Age: 67 Year
  Sex: Female
  Weight: 61.4 kg

DRUGS (25)
  1. SIMVASTATIN. [Concomitant]
     Active Substance: SIMVASTATIN
     Indication: HYPERCHOLESTEROLAEMIA
     Route: 048
     Dates: start: 2012
  2. ALDENDRONAT [Concomitant]
     Indication: OSTEOPOROSIS PROPHYLAXIS
     Route: 048
     Dates: start: 20150121
  3. AMLODIPIN [Concomitant]
     Active Substance: AMLODIPINE BESYLATE
     Route: 048
     Dates: start: 20150629
  4. PAROXETIN [Concomitant]
     Active Substance: PAROXETINE HYDROCHLORIDE
     Indication: DEPRESSION
     Route: 048
     Dates: start: 2008
  5. IBUMETIN [Concomitant]
     Active Substance: IBUPROFEN
     Indication: INTERVERTEBRAL DISC PROTRUSION
  6. REVLIMID [Suspect]
     Active Substance: LENALIDOMIDE
     Indication: PLASMA CELL MYELOMA
     Route: 048
     Dates: start: 20131120
  7. MLN9708 [Suspect]
     Active Substance: IXAZOMIB
     Indication: PLASMA CELL MYELOMA
     Route: 048
     Dates: start: 20131120
  8. DEXAMETHASONE. [Suspect]
     Active Substance: DEXAMETHASONE
     Indication: PLASMA CELL MYELOMA
     Route: 048
     Dates: start: 20131120
  9. MLN9708 [Suspect]
     Active Substance: IXAZOMIB
     Route: 048
     Dates: start: 20150527, end: 20150610
  10. PARACETAMOL RETARD [Concomitant]
     Indication: PRODUCT USED FOR UNKNOWN INDICATION
     Route: 048
     Dates: start: 20131120
  11. CALCIUM [Concomitant]
     Active Substance: CALCIUM
     Indication: SUPPLEMENTATION THERAPY
     Route: 048
     Dates: start: 20140410
  12. GABAPENTIN. [Concomitant]
     Active Substance: GABAPENTIN
     Route: 048
     Dates: start: 20150415, end: 20150616
  13. IBUMETIN [Concomitant]
     Active Substance: IBUPROFEN
     Indication: SPINAL COLUMN STENOSIS
     Route: 048
     Dates: start: 20150505, end: 20150629
  14. GABAPENTIN. [Concomitant]
     Active Substance: GABAPENTIN
     Dosage: 20 MILLIGRAM
     Route: 048
     Dates: start: 20150417, end: 20150616
  15. REVLIMID [Suspect]
     Active Substance: LENALIDOMIDE
     Route: 048
     Dates: start: 20150603, end: 20150610
  16. DEXAMETHASONE. [Suspect]
     Active Substance: DEXAMETHASONE
     Route: 048
     Dates: start: 20150603, end: 20150610
  17. ACETYLSALICYSYRE [Concomitant]
     Indication: DEEP VEIN THROMBOSIS
     Dosage: 800 MILLIGRAM
     Route: 048
     Dates: start: 20150629
  18. PARACETAMOL RETARD [Concomitant]
     Dosage: 20 MILLIGRAM
     Route: 048
     Dates: start: 20150318, end: 20150506
  19. GABAPENTIN. [Concomitant]
     Active Substance: GABAPENTIN
     Indication: PRODUCT USED FOR UNKNOWN INDICATION
     Route: 048
     Dates: start: 20150123
  20. AMLODIPIN [Concomitant]
     Active Substance: AMLODIPINE BESYLATE
     Indication: HYPERTENSION
     Route: 048
     Dates: start: 1997
  21. ACETYLSALICYSYRE [Concomitant]
     Indication: PROPHYLAXIS
     Route: 048
     Dates: start: 20131120, end: 20150603
  22. OXYNORM [Concomitant]
     Active Substance: OXYCODONE HYDROCHLORIDE
     Indication: SPINAL COMPRESSION FRACTURE
     Route: 048
     Dates: start: 20121025
  23. OXYNORM [Concomitant]
     Active Substance: OXYCODONE HYDROCHLORIDE
     Route: 048
     Dates: start: 20150601, end: 20150626
  24. PANTOPRAZOLE [Concomitant]
     Active Substance: PANTOPRAZOLE SODIUM
     Indication: PRODUCT USED FOR UNKNOWN INDICATION
     Route: 048
     Dates: start: 20140409
  25. MULTIVITAMIN [Concomitant]
     Active Substance: VITAMINS
     Indication: VITAMIN SUPPLEMENTATION
     Route: 048
     Dates: start: 2012

REACTIONS (2)
  - Intervertebral disc protrusion [Recovered/Resolved with Sequelae]
  - Spinal column stenosis [Recovered/Resolved with Sequelae]

NARRATIVE: CASE EVENT DATE: 20150521
